FAERS Safety Report 23580215 (Version 3)
Quarter: 2024Q1

REPORT INFORMATION
  Report Type: Report from Study
  Country: DE (occurrence: DE)
  Receive Date: 20240229
  Receipt Date: 20240322
  Transmission Date: 20240410
  Serious: Yes (Hospitalization)
  Sender: FDA-Public Use
  Company Number: DE-SA-SAC20231204000024

PATIENT
  Age: 64 Year
  Sex: Male

DRUGS (31)
  1. ISATUXIMAB [Suspect]
     Active Substance: ISATUXIMAB
     Indication: Plasma cell myeloma refractory
     Dosage: 1000 MG, QW
     Route: 065
     Dates: start: 20230417, end: 20230424
  2. ISATUXIMAB [Suspect]
     Active Substance: ISATUXIMAB
     Dosage: 1000 MG, QW
     Dates: start: 20230502, end: 20230502
  3. ISATUXIMAB [Suspect]
     Active Substance: ISATUXIMAB
     Dosage: 1000 MG, QW
     Dates: start: 20230516, end: 20230516
  4. ISATUXIMAB [Suspect]
     Active Substance: ISATUXIMAB
     Dosage: 1000 MG, BIW
     Dates: start: 20230531, end: 20230531
  5. ISATUXIMAB [Suspect]
     Active Substance: ISATUXIMAB
     Dosage: 1000 MG, BIW
     Dates: start: 20230615, end: 20230615
  6. ISATUXIMAB [Suspect]
     Active Substance: ISATUXIMAB
     Dosage: 1000 MG, BIW
     Dates: start: 20230713, end: 20230713
  7. ISATUXIMAB [Suspect]
     Active Substance: ISATUXIMAB
     Dosage: 1000 MG, BIW
     Dates: start: 20230731, end: 20230731
  8. ISATUXIMAB [Suspect]
     Active Substance: ISATUXIMAB
     Dosage: 1000 MG, BIW
     Dates: start: 20230821, end: 20230904
  9. POMALIDOMIDE [Suspect]
     Active Substance: POMALIDOMIDE
     Indication: Plasma cell myeloma refractory
     Dosage: 4 MG, QD
     Dates: start: 20230417, end: 20230508
  10. POMALIDOMIDE [Suspect]
     Active Substance: POMALIDOMIDE
     Dosage: 4 MG, QD
     Dates: start: 20230531, end: 20230613
  11. POMALIDOMIDE [Suspect]
     Active Substance: POMALIDOMIDE
     Dosage: 4 MG, QD
     Dates: start: 20230615, end: 20230621
  12. POMALIDOMIDE [Suspect]
     Active Substance: POMALIDOMIDE
     Dosage: 4 MG, QD
     Dates: start: 20230713, end: 20230713
  13. POMALIDOMIDE [Suspect]
     Active Substance: POMALIDOMIDE
     Dosage: 4 MG, QD
     Dates: start: 20230731, end: 20230806
  14. POMALIDOMIDE [Suspect]
     Active Substance: POMALIDOMIDE
     Dosage: 4 MG, QD
     Dates: start: 20230821, end: 20230910
  15. DEXAMETHASONE [Suspect]
     Active Substance: DEXAMETHASONE
     Indication: Plasma cell myeloma refractory
     Dosage: 40 MG, D1, D8
     Dates: start: 20230417, end: 20230524
  16. DEXAMETHASONE [Suspect]
     Active Substance: DEXAMETHASONE
     Dosage: 40 MG, D15
     Dates: start: 20230502, end: 20230502
  17. DEXAMETHASONE [Suspect]
     Active Substance: DEXAMETHASONE
     Dosage: 40 MG, D22
     Dates: start: 20230516, end: 20230516
  18. DEXAMETHASONE [Suspect]
     Active Substance: DEXAMETHASONE
     Dosage: 40 MG, D1
     Dates: start: 20230531, end: 20230531
  19. DEXAMETHASONE [Suspect]
     Active Substance: DEXAMETHASONE
     Dosage: 40 MG, D15
     Dates: start: 20230615, end: 20230615
  20. DEXAMETHASONE [Suspect]
     Active Substance: DEXAMETHASONE
     Dosage: 40 MG, D1
     Dates: start: 20230713, end: 20230713
  21. DEXAMETHASONE [Suspect]
     Active Substance: DEXAMETHASONE
     Dosage: 40 MG, D15
     Dates: start: 20230731, end: 20230731
  22. DEXAMETHASONE [Suspect]
     Active Substance: DEXAMETHASONE
     Dosage: 40 MG, BIW
     Dates: start: 20230821, end: 20230904
  23. ACETAMINOPHEN [Concomitant]
     Active Substance: ACETAMINOPHEN
     Indication: Allergy prophylaxis
     Dosage: UNK, D1, D8, D15 EVERY CYCLE
     Dates: start: 20230417, end: 20230821
  24. CLEMASTINE [Concomitant]
     Active Substance: CLEMASTINE
     Indication: Allergy prophylaxis
     Dosage: UNK, D1, D8, D15 EVERY CYCLE
     Dates: start: 20230417, end: 20230821
  25. FILGRASTIM [Concomitant]
     Active Substance: FILGRASTIM
     Dosage: UNK
     Dates: start: 20230509, end: 20230512
  26. FILGRASTIM [Concomitant]
     Active Substance: FILGRASTIM
     Dosage: UNK
     Dates: start: 20230814, end: 20230816
  27. LEVOTHYROXINE SODIUM [Concomitant]
     Active Substance: LEVOTHYROXINE SODIUM
     Indication: Hypothyroidism
     Dosage: UNK
     Dates: start: 2014
  28. RIVAROXABAN [Concomitant]
     Active Substance: RIVAROXABAN
     Indication: Pulmonary embolism
     Dosage: UNK
     Dates: start: 201406
  29. RIVAROXABAN [Concomitant]
     Active Substance: RIVAROXABAN
     Indication: Deep vein thrombosis
  30. CANDESARTAN [Concomitant]
     Active Substance: CANDESARTAN
     Indication: Hypertension
     Dosage: UNK
     Dates: start: 2014
  31. IBANDRONATE SODIUM [Concomitant]
     Active Substance: IBANDRONATE SODIUM
     Indication: Osteoporosis prophylaxis
     Dosage: UNK
     Dates: start: 20220218

REACTIONS (2)
  - Bacterial infection [Recovered/Resolved]
  - Neutropenia [Recovered/Resolved]

NARRATIVE: CASE EVENT DATE: 20231109
